FAERS Safety Report 4304432-1 (Version None)
Quarter: 2004Q1

REPORT INFORMATION
  Report Type: 
  Country: None (occurrence: None)
  Receive Date: 20040226
  Receipt Date: 20040203
  Transmission Date: 20041129
  Serious: Yes (Death, Other)
  Sender: FDA-Public Use
  Company Number: 200410255JP

PATIENT
  Age: 62 Year
  Sex: Female
  Weight: 47.5 kg

DRUGS (11)
  1. TAXOTERE [Suspect]
     Indication: NEOPLASM RECURRENCE
     Route: 041
     Dates: start: 20031219, end: 20031219
  2. TAXOTERE [Suspect]
     Indication: OVARIAN CANCER
     Route: 041
     Dates: start: 20031219, end: 20031219
  3. GEMZAR [Suspect]
     Indication: NEOPLASM RECURRENCE
     Route: 041
     Dates: start: 20031031, end: 20031219
  4. GEMZAR [Suspect]
     Indication: OVARIAN CANCER
     Route: 041
     Dates: start: 20031031, end: 20031219
  5. DECADRON [Concomitant]
     Indication: PREMEDICATION
     Route: 048
     Dates: start: 20030916, end: 20031220
  6. LENDORM [Concomitant]
     Indication: INSOMNIA
     Route: 048
     Dates: start: 20010220, end: 20031230
  7. GASTER [Concomitant]
     Indication: PREMEDICATION
     Route: 048
     Dates: start: 20030925, end: 20031230
  8. LASIX [Concomitant]
     Indication: ASCITES
     Route: 048
     Dates: start: 20031208, end: 20031230
  9. LASIX [Concomitant]
     Indication: PROPHYLAXIS
     Route: 048
     Dates: start: 20031208, end: 20031230
  10. DAONIL [Concomitant]
     Indication: DIABETES MELLITUS
     Route: 048
     Dates: start: 20001219, end: 20031230
  11. BASEN [Concomitant]
     Indication: DIABETES MELLITUS
     Route: 048
     Dates: start: 20001219, end: 20031230

REACTIONS (15)
  - BLOOD CREATINE INCREASED [None]
  - BLOOD GLUCOSE INCREASED [None]
  - BLOOD POTASSIUM DECREASED [None]
  - BLOOD PRESSURE DECREASED [None]
  - BLOOD SODIUM DECREASED [None]
  - BLOOD UREA INCREASED [None]
  - BODY TEMPERATURE INCREASED [None]
  - DRUG INEFFECTIVE [None]
  - HAEMOGLOBIN DECREASED [None]
  - HEART RATE INCREASED [None]
  - HEPATIC FAILURE [None]
  - ILEUS [None]
  - NEOPLASM RECURRENCE [None]
  - OVARIAN CANCER [None]
  - RED BLOOD CELL COUNT DECREASED [None]
